FAERS Safety Report 5460086-2 (Version None)
Quarter: 2007Q3

REPORT INFORMATION
  Report Type: 
  Country: None (occurrence: None)
  Receive Date: 20070820
  Receipt Date: 20070228
  Transmission Date: 20080115
  Serious: No
  Sender: FDA-Public Use
  Company Number: TPA2007A00411

PATIENT
  Age: 32 Year
  Sex: Female
  Weight: 114.76 kg

DRUGS (6)
  1. ROZEREM [Suspect]
     Indication: INSOMNIA
     Dosage: 1 IN 1 D, PER ORAL
     Route: 048
  2. RAZADYNE [Suspect]
     Indication: INSOMNIA
     Dosage: 8 MG, 1 IN 1 D, PER ORAL
     Route: 048
     Dates: start: 20060927, end: 20070121
  3. TOPAMAX [Concomitant]
  4. NYASPAN (NICOTINIC ACID) [Concomitant]
  5. SYNTRHOID (LEVOTHYROXINE SODIUM) [Concomitant]
  6. YASMIN [Concomitant]

REACTIONS (2)
  - DRUG DISPENSING ERROR [None]
  - NO ADVERSE REACTION [None]
